FAERS Safety Report 7069121-1 (Version None)
Quarter: 2010Q4

REPORT INFORMATION
  Report Type: 
  Country: None (occurrence: None)
  Receive Date: 20101028
  Receipt Date: 20101022
  Transmission Date: 20110411
  Serious: Yes (Hospitalization, Congenital Anomaly)
  Sender: FDA-Public Use
  Company Number: A0871561A

PATIENT
  Sex: Female
  Weight: 1.6 kg

DRUGS (4)
  1. PAXIL [Suspect]
     Indication: PRODUCT USED FOR UNKNOWN INDICATION
  2. DEXAMETHASONE [Concomitant]
  3. VITAMINS [Concomitant]
  4. ROCEPHIN [Concomitant]

REACTIONS (5)
  - ATRIAL SEPTAL DEFECT [None]
  - CARDIAC SEPTAL DEFECT [None]
  - DRUG EXPOSURE DURING PREGNANCY [None]
  - PATENT DUCTUS ARTERIOSUS [None]
  - PULMONARY VALVE STENOSIS [None]
